FAERS Safety Report 8831223 (Version 2)
Quarter: 2012Q4

REPORT INFORMATION
  Report Type: 
  Country: US (occurrence: US)
  Receive Date: 20121008
  Receipt Date: 20121015
  Transmission Date: 20130627
  Serious: No
  Sender: FDA-Public Use
  Company Number: US-VERTEX PHARMACEUTICAL INC.-2012-021406

PATIENT
  Age: 59 None
  Sex: Female
  Weight: 74 kg

DRUGS (8)
  1. INCIVEK [Suspect]
     Indication: HEPATITIS C
     Dosage: 750 mg, tid
     Route: 048
     Dates: start: 20120831, end: 20120921
  2. INCIVEK [Suspect]
     Dosage: 750 mg, tid
     Route: 048
     Dates: start: 20120925, end: 20120927
  3. COPEGUS [Suspect]
     Indication: HEPATITIS C
     Dosage: 1000 mg, qd
     Route: 048
     Dates: start: 20120831, end: 20120921
  4. COPEGUS [Suspect]
     Dosage: 1000 UNK, UNK
     Route: 048
     Dates: start: 20120925, end: 20120927
  5. PEGASYS [Suspect]
     Indication: HEPATITIS C
     Dosage: 180 ?g, UNK
     Route: 058
     Dates: start: 20120831, end: 20120921
  6. PEGASYS [Suspect]
     Dosage: 180 ?g, UNK
     Route: 058
     Dates: start: 20120925, end: 20120927
  7. BP MEDS [Concomitant]
     Indication: MYOCARDITIS
  8. MYCARDIS HDT [Concomitant]
     Indication: HYPERTENSION
     Dosage: 80mg/12.5mg qd
     Route: 048

REACTIONS (9)
  - Hypotension [Not Recovered/Not Resolved]
  - Dizziness postural [Not Recovered/Not Resolved]
  - Confusional state [Not Recovered/Not Resolved]
  - Blood sodium decreased [Not Recovered/Not Resolved]
  - Syncope [Not Recovered/Not Resolved]
  - Haemoglobin decreased [Not Recovered/Not Resolved]
  - Red blood cell count decreased [Not Recovered/Not Resolved]
  - Platelet count decreased [Not Recovered/Not Resolved]
  - Blood uric acid increased [Not Recovered/Not Resolved]
